FAERS Safety Report 7337376-1 (Version None)
Quarter: 2011Q1

REPORT INFORMATION
  Report Type: 
  Country: None (occurrence: None)
  Receive Date: 20110304
  Receipt Date: 20110304
  Transmission Date: 20110831
  Serious: Yes (Other)
  Sender: FDA-Public Use
  Company Number: None

PATIENT
  Age: 60 Year
  Sex: Female
  Weight: 47.6277 kg

DRUGS (1)
  1. ALCOHOL PREP PADS 100 COUNT TRIAD GROUP, INC [Suspect]
     Indication: VITAMIN SUPPLEMENTATION
     Dosage: WEEKLY B12 SOMETIMES DAILY
     Dates: start: 20100901, end: 20110224

REACTIONS (6)
  - FOOD POISONING [None]
  - VOMITING [None]
  - IMPAIRED WORK ABILITY [None]
  - PRODUCT QUALITY ISSUE [None]
  - VIRAL INFECTION [None]
  - ABDOMINAL PAIN [None]
